FAERS Safety Report 9749911 (Version 1)
Quarter: 2013Q4

REPORT INFORMATION
  Report Type: Spontaneous
  Country: SE (occurrence: SE)
  Receive Date: 20131212
  Receipt Date: 20131212
  Transmission Date: 20140711
  Serious: Yes (Hospitalization)
  Sender: FDA-Public Use
  Company Number: SE-BAYER-2013-147616

PATIENT
  Age: 27 Year
  Sex: Female
  Weight: 60 kg

DRUGS (1)
  1. QLAIRA [Suspect]
     Indication: CONTRACEPTION
     Dates: start: 201205, end: 201301

REACTIONS (5)
  - Mucosal dryness [Recovered/Resolved]
  - Vulvovaginal mycotic infection [Recovered/Resolved]
  - Libido decreased [Recovered/Resolved]
  - Hypertension [Recovered/Resolved]
  - Dyspareunia [Recovered/Resolved]
